FAERS Safety Report 21994115 (Version 1)
Quarter: 2023Q1

REPORT INFORMATION
  Report Type: Spontaneous
  Country: DE (occurrence: DE)
  Receive Date: 20230215
  Receipt Date: 20230215
  Transmission Date: 20230417
  Serious: Yes (Other)
  Sender: FDA-Public Use
  Company Number: DE-THEA-2023000259

PATIENT
  Sex: Male

DRUGS (2)
  1. LATANOPROST [Suspect]
     Active Substance: LATANOPROST
     Indication: Glaucoma
     Route: 047
  2. Dorzolamid [Concomitant]
     Indication: Glaucoma
     Route: 047

REACTIONS (5)
  - Cataract [Unknown]
  - Vision blurred [Unknown]
  - Visual impairment [Unknown]
  - Eye inflammation [Unknown]
  - Purulent discharge [Unknown]
